FAERS Safety Report 10512788 (Version 5)
Quarter: 2015Q1

REPORT INFORMATION
  Report Type: Spontaneous
  Country: IT (occurrence: IT)
  Receive Date: 20141013
  Receipt Date: 20150129
  Transmission Date: 20150720
  Serious: Yes (Hospitalization)
  Sender: FDA-Public Use
  Company Number: IT-ROCHE-1472045

PATIENT
  Age: 46 Year
  Sex: Female

DRUGS (9)
  1. DELORAZEPAM [Concomitant]
     Active Substance: DELORAZEPAM
  2. DIAZEPAM. [Suspect]
     Active Substance: DIAZEPAM
     Indication: PERSONALITY DISORDER
     Route: 048
     Dates: start: 20140830, end: 20140830
  3. FLURAZEPAM [Concomitant]
     Active Substance: FLURAZEPAM\FLURAZEPAM HYDROCHLORIDE
  4. DIAZEPAM. [Suspect]
     Active Substance: DIAZEPAM
     Indication: INTENTIONAL SELF-INJURY
     Route: 048
     Dates: start: 20140914, end: 20140914
  5. ZOLPIDEM TARTRATE. [Suspect]
     Active Substance: ZOLPIDEM TARTRATE
     Indication: INTENTIONAL SELF-INJURY
     Route: 048
     Dates: start: 20140914, end: 20140914
  6. QUETIAPINE [Suspect]
     Active Substance: QUETIAPINE
     Indication: PERSONALITY DISORDER
     Route: 048
     Dates: start: 20140830, end: 20140830
  7. QUETIAPINE [Suspect]
     Active Substance: QUETIAPINE
     Indication: INTENTIONAL SELF-INJURY
     Route: 048
     Dates: start: 20140914, end: 20140914
  8. VALDORM [Suspect]
     Active Substance: VALERIAN
     Indication: INTENTIONAL SELF-INJURY
     Route: 048
     Dates: start: 20140914, end: 20140914
  9. VALDORM [Suspect]
     Active Substance: VALERIAN
     Indication: PERSONALITY DISORDER
     Route: 048
     Dates: start: 20140830, end: 20140830

REACTIONS (4)
  - Drug abuse [Unknown]
  - Confusional state [Recovered/Resolved]
  - Sopor [Recovered/Resolved]
  - Intentional self-injury [Recovered/Resolved]

NARRATIVE: CASE EVENT DATE: 20140830
